FAERS Safety Report 12313011 (Version 2)
Quarter: 2016Q2

REPORT INFORMATION
  Report Type: Spontaneous
  Country: BR (occurrence: BR)
  Receive Date: 20160428
  Receipt Date: 20160623
  Transmission Date: 20160815
  Serious: Yes (Other)
  Sender: FDA-Public Use
  Company Number: BR-ROCHE-1748799

PATIENT
  Age: 65 Year
  Sex: Female

DRUGS (1)
  1. ACTEMRA [Suspect]
     Active Substance: TOCILIZUMAB
     Indication: PRODUCT USED FOR UNKNOWN INDICATION
     Route: 065
     Dates: start: 2014

REACTIONS (8)
  - Cerebrovascular accident [Unknown]
  - Erythema nodosum [Unknown]
  - Platelet count decreased [Unknown]
  - Viral infection [Unknown]
  - Thrombocytopenia [Unknown]
  - Panniculitis [Unknown]
  - Dyslipidaemia [Unknown]
  - Pyrexia [Unknown]
